FAERS Safety Report 8613597-2 (Version None)
Quarter: 2012Q3

REPORT INFORMATION
  Report Type: 
  Country: None (occurrence: None)
  Receive Date: 20120823
  Receipt Date: 20120808
  Transmission Date: 20120928
  Serious: Yes (Hospitalization)
  Sender: FDA-Public Use
  Company Number: NL-009507513-2011SP044470

PATIENT

DRUGS (20)
  1. PEGINTERFERON ALFA-2B [Suspect]
  2. ABACAVIR SULFATE/LAMIVUDINE [Concomitant]
     Indication: HIV INFECTION
     Dosage: 1 DF, UNK
     Route: 048
     Dates: start: 20060107
  3. BLINDED BOCEPREVIR [Suspect]
     Indication: HEPATITIS C
     Dosage: 4 X 3 TABLET A DAY
     Route: 048
     Dates: start: 20100812, end: 20110616
  4. SIMVASTATIN [Suspect]
     Indication: HEPATITIS C
     Dosage: 4 X 3 TABLET A DAY
     Route: 048
     Dates: start: 20100812, end: 20110616
  5. SIMVASTATIN [Suspect]
     Dosage: 4 X 3 TABLET A DAY
     Route: 048
     Dates: start: 20100812, end: 20110616
  6. PAPAVERINE HYDROCHLORIDE (+) PHENTOLAMINE MESYLATE [Concomitant]
     Dates: start: 20110714
  7. PLACEBO [Suspect]
     Indication: HEPATITIS C
     Dosage: 4 X 3 TABLET A DAY
     Route: 048
     Dates: start: 20100812, end: 20110616
  8. SIMVASTATIN [Suspect]
     Dosage: 4 X 3 TABLET A DAY
     Route: 048
     Dates: start: 20100812, end: 20110616
  9. GLIMEPIRIDE [Concomitant]
     Indication: TYPE 2 DIABETES MELLITUS
     Dates: start: 20110107
  10. SIMVASTATIN [Suspect]
     Indication: HEPATITIS C
     Dosage: 4 X 3 TABLET A DAY
     Route: 048
     Dates: start: 20100812, end: 20110616
  11. SIMVASTATIN [Suspect]
     Dosage: 4 X 3 TABLET A DAY
     Route: 048
     Dates: start: 20100812, end: 20110616
  12. RIBAVIRIN [Suspect]
     Indication: HEPATITIS C
     Dosage: 4 X 3 TABLET A DAY
     Route: 048
     Dates: start: 20100812, end: 20110616
  13. ATAZANAVIR [Suspect]
     Indication: HIV INFECTION
     Dosage: 300 MG, UNK
     Route: 048
     Dates: start: 20060510, end: 20110824
  14. PEGINTERFERON ALFA-2B [Suspect]
     Indication: HEPATITIS C
     Dosage: 4 X 3 TABLET A DAY
     Route: 048
     Dates: start: 20100812, end: 20110616
  15. RITONAVIR [Concomitant]
     Indication: HIV INFECTION
     Dosage: 400 MG, UNK
     Route: 048
     Dates: start: 20060107
  16. RIBAVIRIN [Suspect]
  17. SIMVASTATIN [Suspect]
     Dosage: 4 X 3 TABLET A DAY
     Route: 048
     Dates: start: 20100812, end: 20110616
  18. REYATAZ [Concomitant]
  19. RALTEGRAVIR [Concomitant]
     Dates: start: 20110902
  20. POLYETHYLENE GLYCOL [Concomitant]

REACTIONS (3)
  - PANCREATITIS [None]
  - CHOLECYSTECTOMY [None]
  - CHOLELITHIASIS [None]
